FAERS Safety Report 11200576 (Version 1)
Quarter: 2015Q2

REPORT INFORMATION
  Report Type: Spontaneous
  Country: CA (occurrence: CA)
  Receive Date: 20150618
  Receipt Date: 20150618
  Transmission Date: 20150821
  Serious: Yes (Hospitalization)
  Sender: FDA-Public Use
  Company Number: CA-TEVA-570965USA

PATIENT
  Age: 67 Year
  Sex: Female

DRUGS (1)
  1. REVIA [Suspect]
     Active Substance: NALTREXONE HYDROCHLORIDE
     Indication: PRODUCT USED FOR UNKNOWN INDICATION
     Route: 065

REACTIONS (3)
  - Pain in extremity [Unknown]
  - Peripheral swelling [Unknown]
  - Erythema [Unknown]
